FAERS Safety Report 22211305 (Version 4)
Quarter: 2023Q4

REPORT INFORMATION
  Report Type: Spontaneous
  Country: US (occurrence: US)
  Receive Date: 20230414
  Receipt Date: 20231120
  Transmission Date: 20240109
  Serious: Yes (Other)
  Sender: FDA-Public Use
  Company Number: US-BAYER-2023A043975

PATIENT
  Age: 30 Year
  Sex: Female

DRUGS (1)
  1. MIRENA [Suspect]
     Active Substance: LEVONORGESTREL
     Indication: Contraception
     Dosage: 20?G/DAY
     Route: 015
     Dates: start: 202204, end: 202304

REACTIONS (7)
  - Genital haemorrhage [Recovered/Resolved]
  - Device dislocation [Recovered/Resolved]
  - Neuralgia [Recovered/Resolved]
  - Gait disturbance [Recovered/Resolved]
  - Complication of device removal [None]
  - Pain [None]
  - Sciatica [None]

NARRATIVE: CASE EVENT DATE: 20230401
